FAERS Safety Report 15355027 (Version 2)
Quarter: 2019Q1

REPORT INFORMATION
  Report Type: Spontaneous
  Country: US (occurrence: US)
  Receive Date: 20180906
  Receipt Date: 20190124
  Transmission Date: 20190417
  Serious: No
  Sender: FDA-Public Use
  Company Number: US-VERTEX PHARMACEUTICALS-2018-006376

PATIENT
  Sex: Female

DRUGS (13)
  1. BACTRIM DS [Concomitant]
     Active Substance: SULFAMETHOXAZOLE\TRIMETHOPRIM
     Dosage: UNK
  2. CREON [Concomitant]
     Active Substance: PANCRELIPASE AMYLASE\PANCRELIPASE LIPASE\PANCRELIPASE PROTEASE
     Dosage: UNK
  3. AZITHROMYCIN ANHYDROUS. [Concomitant]
     Active Substance: AZITHROMYCIN ANHYDROUS
     Dosage: UNK
  4. PROAIR HFA [Concomitant]
     Active Substance: ALBUTEROL SULFATE
     Dosage: UNK
  5. SYMDEKO [Suspect]
     Active Substance: IVACAFTOR\TEZACAFTOR
     Dosage: UNK
     Route: 048
  6. SYMDEKO [Suspect]
     Active Substance: IVACAFTOR\TEZACAFTOR
     Indication: CYSTIC FIBROSIS
     Dosage: UNK, BID
     Route: 048
     Dates: start: 201805, end: 201808
  7. SINGULAIR [Concomitant]
     Active Substance: MONTELUKAST SODIUM
     Dosage: UNK
  8. STARLIX [Concomitant]
     Active Substance: NATEGLINIDE
     Dosage: UNK
  9. PULMOZYME [Concomitant]
     Active Substance: DORNASE ALFA
     Dosage: UNK
  10. URSODIOL. [Concomitant]
     Active Substance: URSODIOL
     Dosage: UNK
  11. LOESTRIN NOS [Concomitant]
     Active Substance: ETHINYL ESTRADIOL\NORETHINDRONE ACETATE
     Dosage: UNK
  12. OMEPRAZOLE. [Concomitant]
     Active Substance: OMEPRAZOLE
     Dosage: UNK
  13. MEPHYTON [Concomitant]
     Active Substance: PHYTONADIONE
     Dosage: UNK

REACTIONS (3)
  - Infection [Not Recovered/Not Resolved]
  - Faeces pale [Unknown]
  - Sinusitis [Recovering/Resolving]

NARRATIVE: CASE EVENT DATE: 2018
